FAERS Safety Report 19206887 (Version 2)
Quarter: 2021Q2

REPORT INFORMATION
  Report Type: Report from Study
  Country: IE (occurrence: IE)
  Receive Date: 20210503
  Receipt Date: 20210510
  Transmission Date: 20210717
  Serious: Yes (Hospitalization)
  Sender: FDA-Public Use
  Company Number: IE-PFIZER INC-2020447009

PATIENT
  Weight: 64.5 kg

DRUGS (3)
  1. GEMTUZUMAB OZOGAMICIN [Suspect]
     Active Substance: GEMTUZUMAB OZOGAMICIN
     Indication: ACUTE MYELOID LEUKAEMIA
     Dosage: 0.5 MG(OTHER)
     Route: 042
     Dates: start: 20201027, end: 20201102
  2. MITOXANTRONE HCL [Suspect]
     Active Substance: MITOXANTRONE HYDROCHLORIDE
     Indication: ACUTE MYELOID LEUKAEMIA
     Dosage: 22 MG/M2, 1X/DAY
     Route: 042
     Dates: start: 20201023, end: 20201026
  3. PREDNISOLONE. [Concomitant]
     Active Substance: PREDNISOLONE
     Indication: INFECTION PROPHYLAXIS
     Dosage: 1 DROP, 4X/DAY (ONE DROP EACH EYE EVERY 6 HOURS)
     Dates: start: 20201029, end: 20201030

REACTIONS (3)
  - Febrile neutropenia [Recovered/Resolved]
  - Streptococcal sepsis [Recovered/Resolved]
  - Anaemia [Unknown]

NARRATIVE: CASE EVENT DATE: 20201107
